FAERS Safety Report 5526424-7 (Version None)
Quarter: 2007Q4

REPORT INFORMATION
  Report Type: 
  Country: None (occurrence: None)
  Receive Date: 20071123
  Receipt Date: 20070813
  Transmission Date: 20080405
  Serious: Yes (Other)
  Sender: FDA-Public Use
  Company Number: US-JNJFOC-20070803088

PATIENT
  Age: 54 Year
  Sex: Male
  Weight: 102.5129 kg

DRUGS (2)
  1. LEVAQUIN [Suspect]
     Indication: SERRATIA INFECTION
     Dosage: 750 MG, IN 1 DAY, INTRAVENOUS
     Route: 042
     Dates: start: 20070811
  2. VANCOMYCIN [Concomitant]

REACTIONS (1)
  - SERRATIA INFECTION [None]
